FAERS Safety Report 6490721-1 (Version None)
Quarter: 2009Q4

REPORT INFORMATION
  Report Type: 
  Country: None (occurrence: None)
  Receive Date: 20091211
  Receipt Date: 20091204
  Transmission Date: 20100525
  Serious: Yes (Hospitalization)
  Sender: FDA-Public Use
  Company Number: B0611453A

PATIENT
  Sex: Male

DRUGS (4)
  1. ZOPHREN [Suspect]
     Indication: VOMITING
     Route: 048
     Dates: start: 20090115
  2. ALIMTA [Concomitant]
     Route: 042
     Dates: start: 20090115
  3. CORTICOIDS [Concomitant]
     Indication: PREMEDICATION
     Route: 065
  4. TAXOTERE [Concomitant]
     Indication: DRUG USE FOR UNKNOWN INDICATION
     Route: 065
     Dates: start: 20090203

REACTIONS (5)
  - GASTROENTERITIS [None]
  - HYPERSENSITIVITY [None]
  - PYREXIA [None]
  - RASH MACULO-PAPULAR [None]
  - TRANSAMINASES INCREASED [None]
